FAERS Safety Report 4620304-7 (Version None)
Quarter: 2005Q1

REPORT INFORMATION
  Report Type: 
  Country: None (occurrence: None)
  Receive Date: 20050324
  Receipt Date: 20050307
  Transmission Date: 20050727
  Serious: Yes (Hospitalization)
  Sender: FDA-Public Use
  Company Number: US_001051544

PATIENT
  Age: 54 Year
  Sex: Female

DRUGS (5)
  1. HUMATROPE [Suspect]
     Indication: BLOOD GROWTH HORMONE DECREASED
     Dosage: 0.4 MG/1 DAY
     Dates: start: 20040606
  2. SYNTHROID [Concomitant]
  3. COFTEF (HYDROCORTISONE) [Concomitant]
  4. DESMOPRESSIN ACETATE [Concomitant]
  5. ZELNORM [Concomitant]

REACTIONS (9)
  - DEVICE MALFUNCTION [None]
  - DIVERTICULITIS [None]
  - FATIGUE [None]
  - FEELING ABNORMAL [None]
  - IRRITABLE BOWEL SYNDROME [None]
  - MEDICATION ERROR [None]
  - PHARMACEUTICAL PRODUCT COMPLAINT [None]
  - SKIN PAPILLOMA [None]
  - WEIGHT INCREASED [None]
